FAERS Safety Report 24404934 (Version 1)
Quarter: 2024Q4

REPORT INFORMATION
  Report Type: Spontaneous
  Country: US (occurrence: None)
  Receive Date: 20241004
  Receipt Date: 20241004
  Transmission Date: 20250115
  Serious: Yes (Hospitalization)
  Sender: Public
  Company Number: None

PATIENT
  Age: 73 Year
  Sex: Male
  Weight: 116 kg

DRUGS (1)
  1. WARFARIN SODIUM [Suspect]
     Active Substance: WARFARIN SODIUM
     Indication: Cardiac valve prosthesis user
     Route: 048

REACTIONS (4)
  - Anticoagulation drug level below therapeutic [None]
  - Embolic stroke [None]
  - Cerebral infarction [None]
  - Cerebral artery thrombosis [None]

NARRATIVE: CASE EVENT DATE: 20240525
